FAERS Safety Report 6417810-1 (Version None)
Quarter: 2009Q4

REPORT INFORMATION
  Report Type: 
  Country: None (occurrence: None)
  Receive Date: 20091028
  Receipt Date: 20091021
  Transmission Date: 20100525
  Serious: Yes (Other)
  Sender: FDA-Public Use
  Company Number: BR-AVENTIS-200921917GDDC

PATIENT
  Age: 39 Year
  Sex: Female

DRUGS (8)
  1. LANTUS [Suspect]
     Route: 058
     Dates: start: 20000101, end: 20090101
  2. LANTUS [Suspect]
     Dosage: DOSE: VARIABLE DOSE
     Route: 058
     Dates: start: 20090101, end: 20090101
  3. LANTUS [Suspect]
     Route: 058
     Dates: start: 20090101
  4. OPTIPEN (INSULIN PUMP) [Suspect]
     Dates: start: 20000101
  5. APIDRA [Suspect]
     Dosage: DOSE: VARIABLE
     Dates: start: 20090801
  6. OPTIPEN (INSULIN PUMP) [Suspect]
  7. NOVORAPID [Concomitant]
     Dosage: DOSE: VARIABLE
     Route: 058
     Dates: end: 20090801
  8. EUTHROID-1 [Concomitant]
     Indication: HYPOTHYROIDISM
     Route: 048

REACTIONS (9)
  - DRUG EXPOSURE DURING PREGNANCY [None]
  - FEELING ABNORMAL [None]
  - HUNGER [None]
  - HYPERGLYCAEMIA [None]
  - HYPERHIDROSIS [None]
  - HYPERTENSION [None]
  - HYPOGLYCAEMIA [None]
  - PRESYNCOPE [None]
  - WEIGHT INCREASED [None]
